FAERS Safety Report 8093183-6 (Version None)
Quarter: 2012Q1

REPORT INFORMATION
  Report Type: 
  Country: None (occurrence: None)
  Receive Date: 20120131
  Receipt Date: 20120119
  Transmission Date: 20120608
  Serious: Yes (Other)
  Sender: FDA-Public Use
  Company Number: US-ELI_LILLY_AND_COMPANY-US201201006433

PATIENT
  Sex: Female

DRUGS (1)
  1. HUMALOG MIX 75/25 [Suspect]
     Indication: DIABETES MELLITUS
     Dosage: 40 U, BID

REACTIONS (4)
  - INJECTION SITE HAEMATOMA [None]
  - VISUAL ACUITY REDUCED [None]
  - INJECTION SITE PAIN [None]
  - EYE HAEMORRHAGE [None]
